FAERS Safety Report 5794777-0 (Version None)
Quarter: 2008Q2

REPORT INFORMATION
  Report Type: 
  Country: None (occurrence: None)
  Receive Date: 20080627
  Receipt Date: 20080627
  Transmission Date: 20081010
  Serious: No
  Sender: FDA-Public Use
  Company Number: None

PATIENT
  Age: 84 Year
  Sex: Male

DRUGS (2)
  1. WARFARIN SODIUM [Suspect]
     Indication: ATRIAL FIBRILLATION
     Dosage: 5 MG EVERY DAY PO
     Route: 048
     Dates: start: 20080229, end: 20080307
  2. WARFARIN SODIUM [Suspect]

REACTIONS (5)
  - DRUG INTERACTION [None]
  - GASTRIC HAEMORRHAGE [None]
  - INTERNATIONAL NORMALISED RATIO INCREASED [None]
  - PHARMACEUTICAL PRODUCT COMPLAINT [None]
  - RECTAL HAEMORRHAGE [None]
